FAERS Safety Report 11914206 (Version 1)
Quarter: 2016Q1

REPORT INFORMATION
  Report Type: Spontaneous
  Country: US (occurrence: US)
  Receive Date: 20160113
  Receipt Date: 20160113
  Transmission Date: 20160526
  Serious: No
  Sender: FDA-Public Use
  Company Number: US-PFIZER INC-2013101843

PATIENT
  Age: 49 Year
  Sex: Female

DRUGS (61)
  1. METFORMIN HCL [Concomitant]
     Active Substance: METFORMIN HYDROCHLORIDE
     Indication: METABOLIC DISORDER
     Dosage: 1000 MG, 2X/DAY, (? TBT)
  2. FLONASE [Concomitant]
     Active Substance: FLUTICASONE PROPIONATE
     Indication: HYPERSENSITIVITY
     Dosage: 2 DF, UNK (2 PUFFS/EA) (AM + PM)
     Route: 045
  3. AMMONIUM LACTATE. [Concomitant]
     Active Substance: AMMONIUM LACTATE
     Indication: DRY SKIN
     Dosage: UNK, 1X/DAY, (12%)
  4. UREA. [Concomitant]
     Active Substance: UREA
     Indication: SKIN HYPERTROPHY
     Dosage: UNK, 1X/DAY, (40%)
  5. CYCLOBENZAPRINE [Concomitant]
     Active Substance: CYCLOBENZAPRINE
     Indication: FIBROMYALGIA
     Dosage: 10 MG, AS NEEDED, (3XDAILY PRN)
  6. FENOFIBRATE. [Concomitant]
     Active Substance: FENOFIBRATE
     Indication: BLOOD CHOLESTEROL
     Dosage: 134 MG, 1X/DAY, (1AT PM)
  7. LYRICA [Suspect]
     Active Substance: PREGABALIN
     Indication: FIBROMYALGIA
     Dosage: 300 MG, 2X/DAY
     Route: 048
  8. PROVERA [Suspect]
     Active Substance: MEDROXYPROGESTERONE ACETATE
     Indication: VAGINAL HAEMORRHAGE
     Dosage: 10 MG, UNK
  9. CLONIDINE. [Concomitant]
     Active Substance: CLONIDINE
     Dosage: 0.1 MG, 1X/DAY, (PM DAILY)
  10. NIACIN. [Concomitant]
     Active Substance: NIACIN
     Indication: BLOOD CHOLESTEROL
     Dosage: 400 MG, 1X/DAY, (1 TBT PM)
  11. FISH OIL [Concomitant]
     Active Substance: FISH OIL
     Indication: NEUROPATHY PERIPHERAL
     Dosage: 2000 MG, 3X/DAY
  12. FLAXSEED [Concomitant]
     Active Substance: FLAX SEED
     Indication: DRY EYE
     Dosage: 1000 MG, 2X/DAY
  13. SUPER CALCIUM + VITAMIN D [Concomitant]
     Indication: PREMENSTRUAL DYSPHORIC DISORDER
     Dosage: UNK, (SUPER CALCIUM 1200MG W/ VIT.D 800IU)
  14. IRON FERROUS SULFATE [Concomitant]
     Indication: ANAEMIA
  15. CYCLOBENZAPRINE [Concomitant]
     Active Substance: CYCLOBENZAPRINE
     Indication: MUSCULOSKELETAL DISCOMFORT
  16. NASONEX [Concomitant]
     Active Substance: MOMETASONE FUROATE
     Indication: HYPERSENSITIVITY
     Dosage: UNK, AS NEEDED, (2 SQUIRT UP NOSTRIL DAILY)
  17. PROMETHAZINE [Concomitant]
     Active Substance: PROMETHAZINE\PROMETHAZINE HYDROCHLORIDE
     Indication: NAUSEA
     Dosage: 25 MG, AS NEEDED, (3/D PRN)
  18. OMEPRAZOLE. [Concomitant]
     Active Substance: OMEPRAZOLE
     Indication: IRRITABLE BOWEL SYNDROME
     Dosage: 20 MG, 1X/DAY, (1/D)
  19. VOLTAREN [Concomitant]
     Active Substance: DICLOFENAC SODIUM
     Indication: PAIN
     Dosage: UNK, AS NEEDED, (4XDAILY)
  20. CLONIDINE. [Concomitant]
     Active Substance: CLONIDINE
     Indication: DEPRESSED MOOD
     Dosage: 0.1 MG, AS NEEDED, (2 X DAILY)
  21. CLOBETASOL [Concomitant]
     Active Substance: CLOBETASOL
     Indication: SKIN DISORDER
     Dosage: UNK UNK, AS NEEDED,(.05% SOL; (NIGHTLY 2 WKS+/2WKS-)), (2 WEEKS MAX/MONTH)
  22. REFRESH [Concomitant]
     Active Substance: UNSPECIFIED INGREDIENT
     Indication: DRY EYE
     Dosage: UNK, (6-8 DROPS/DAY/EYE)
  23. VITAMIN C [Concomitant]
     Active Substance: ASCORBIC ACID
     Indication: BLOOD IRON
     Dosage: 2000 MG, DAILY (1000 MG 2 TABLETS DAILY)
  24. MAGNESIUM [Concomitant]
     Active Substance: MAGNESIUM
     Indication: BLOOD CHOLESTEROL
     Dosage: 250 MG, UNK
  25. BENADRYL [Concomitant]
     Active Substance: DIPHENHYDRAMINE HYDROCHLORIDE
     Indication: SLEEP DISORDER
  26. UREA. [Concomitant]
     Active Substance: UREA
     Indication: DRY SKIN
  27. AMMONIUM LACTATE W/UREA [Concomitant]
     Indication: DRY SKIN
     Dosage: UNK, AS NEEDED, (AMMONIA LACTATE 12% UREA 40 %)
  28. PROMETHAZINE [Concomitant]
     Active Substance: PROMETHAZINE\PROMETHAZINE HYDROCHLORIDE
     Indication: HYPERSENSITIVITY
     Dosage: UNK UNK, AS NEEDED, (1-4 TABLETS/DAY)
  29. LITHIUM. [Concomitant]
     Active Substance: LITHIUM
     Indication: MOOD ALTERED
     Dosage: 425 X 3 (1 AT AM, 2 AT PM)
  30. VITAMIN E [Concomitant]
     Active Substance: .ALPHA.-TOCOPHEROL
     Indication: PREMENSTRUAL DYSPHORIC DISORDER
     Dosage: 400 IU, UNK
  31. CYCLOBENZAPRINE [Concomitant]
     Active Substance: CYCLOBENZAPRINE
     Indication: BACK DISORDER
  32. PROVENTIL [Concomitant]
     Active Substance: ALBUTEROL
     Indication: ASTHMA
     Dosage: 2 DF, AS NEEDED, (2 PUFFS)
  33. POTASSIUM CHLORIDE. [Concomitant]
     Active Substance: POTASSIUM CHLORIDE
     Indication: BLOOD POTASSIUM DECREASED
     Dosage: 10 MEQ, AS NEEDED, (1-3 TABLETS/WK)
  34. LEVOXYL [Suspect]
     Active Substance: LEVOTHYROXINE SODIUM
     Dosage: 75 UG, 1X/DAY
     Route: 048
  35. BABY ASPIRIN [Concomitant]
     Active Substance: ASPIRIN
     Dosage: 160 MG, 1X/DAY, (PM)
  36. BENADRYL [Concomitant]
     Active Substance: DIPHENHYDRAMINE HYDROCHLORIDE
     Indication: HYPERSENSITIVITY
     Dosage: 2 DF, 1X/DAY, (2 TABLETS PM/PRN)
  37. IRON FERROUS SULFATE [Concomitant]
     Indication: PREMENSTRUAL DYSPHORIC DISORDER
     Dosage: 1 DF, 2X/DAY,  (IRON 65MG/FERROUS SULFATE 325 MG)
  38. LAMICTAL [Concomitant]
     Active Substance: LAMOTRIGINE
     Indication: MOOD ALTERED
     Dosage: 50 MG, UNK
     Dates: start: 20130306
  39. VITAMIN B COMPLEX [Concomitant]
     Active Substance: CYANOCOBALAMIN\DEXPANTHENOL\NIACINAMIDE\PYRIDOXINE HYDROCHLORIDE\RIBOFLAVIN 5^-PHOSPHATE SODIUM\THIAMINE HYDROCHLORIDE\VITAMIN B COMPLEX
     Indication: ANAEMIA
     Dosage: 100 MG, DAILY
  40. LYRICA [Suspect]
     Active Substance: PREGABALIN
     Dosage: 150 MG, DAILY
  41. PROVERA [Suspect]
     Active Substance: MEDROXYPROGESTERONE ACETATE
     Indication: MENSTRUAL DISORDER
     Dosage: 2.5 MG, 1X/DAY, (5 DAYS/MONTH)
     Route: 048
  42. KIRKLAND SIGNATURE ALLER TEC ALLERGY [Concomitant]
     Active Substance: CETIRIZINE HYDROCHLORIDE
     Indication: HYPERSENSITIVITY
     Dosage: 10 MG, DAILY
  43. KIRKLAND SIGNATURE ALLER TEC ALLERGY [Concomitant]
     Active Substance: CETIRIZINE HYDROCHLORIDE
     Indication: SLEEP DISORDER
  44. ALBUTEROL. [Concomitant]
     Active Substance: ALBUTEROL
     Indication: ASTHMA
     Dosage: UNK
  45. OLANZAPINE. [Concomitant]
     Active Substance: OLANZAPINE
     Indication: MOOD ALTERED
     Dosage: 2.5 MG, 1X/DAY, (PM)
  46. PROBIOTICS [Concomitant]
     Active Substance: PROBIOTICS NOS
     Indication: IRRITABLE BOWEL SYNDROME
     Dosage: 1 DF, 2X/DAY
  47. POTASSIUM CHLORIDE. [Concomitant]
     Active Substance: POTASSIUM CHLORIDE
     Indication: MUSCLE SPASMS
  48. OMEPRAZOLE. [Concomitant]
     Active Substance: OMEPRAZOLE
     Indication: GASTROOESOPHAGEAL REFLUX DISEASE
  49. PROAIR HFA [Concomitant]
     Active Substance: ALBUTEROL SULFATE
     Indication: ASTHMA
     Dosage: 2 DF, AS NEEDED, (2 PUFFS PRN)
  50. METFORMIN HCL [Concomitant]
     Active Substance: METFORMIN HYDROCHLORIDE
     Indication: GLUCOSE TOLERANCE IMPAIRED
  51. VITAMIN C [Concomitant]
     Active Substance: ASCORBIC ACID
     Indication: NASOPHARYNGITIS
     Dosage: 500 MG, AS NEEDED, (1-4 TBS DAILY PRN)
  52. VITAMIN B-6 [Concomitant]
     Active Substance: PYRIDOXINE
     Indication: PREMENSTRUAL DYSPHORIC DISORDER
     Dosage: 100 MG, DAILY
  53. LEVOXYL [Suspect]
     Active Substance: LEVOTHYROXINE SODIUM
     Indication: HYPOTHYROIDISM
     Dosage: 75 UG, ALTERNATE DAY, (3 X /WK)
     Route: 048
  54. KETOCONAZOLE. [Concomitant]
     Active Substance: KETOCONAZOLE
     Indication: SKIN DISORDER
     Dosage: UNK, WEEKLY, 2% (EVERY TIME I SHAMPOO)
  55. NORTRIPTYLINE HCL [Concomitant]
     Active Substance: NORTRIPTYLINE HYDROCHLORIDE
     Indication: NEUROPATHY PERIPHERAL
     Dosage: 25 MG, 2X/DAY, (CAP1 AM + PM)
  56. MAGNESIUM [Concomitant]
     Active Substance: MAGNESIUM
     Indication: PREMENSTRUAL DYSPHORIC DISORDER
  57. IBUPROFEN. [Concomitant]
     Active Substance: IBUPROFEN
     Indication: PAIN
     Dosage: 800 MG, AS NEEDED, (3/DAY)
  58. LEXAPRO [Concomitant]
     Active Substance: ESCITALOPRAM OXALATE
     Indication: DEPRESSION
     Dosage: 20 MG, 1X/DAY, (AT PM)
  59. LEXAPRO [Concomitant]
     Active Substance: ESCITALOPRAM OXALATE
     Indication: PREMENSTRUAL DYSPHORIC DISORDER
  60. FLUSH FREE NIACIN [Concomitant]
     Indication: BLOOD CHOLESTEROL
     Dosage: 400 MG, 1X/DAY, (1 TBT PM)
  61. KRILL OIL [Concomitant]
     Active Substance: DIETARY SUPPLEMENT
     Indication: NEUROPATHY PERIPHERAL
     Dosage: 800 MG, 3X/DAY, (2 X 3 DAILY)

REACTIONS (6)
  - Fatigue [Unknown]
  - Rash [Unknown]
  - Peripheral swelling [Unknown]
  - Feeling abnormal [Unknown]
  - Urticaria [Unknown]
  - Erythema [Unknown]
